FAERS Safety Report 7272186-5 (Version None)
Quarter: 2011Q1

REPORT INFORMATION
  Report Type: 
  Country: None (occurrence: None)
  Receive Date: 20110203
  Receipt Date: 20110120
  Transmission Date: 20110831
  Serious: Yes (Hospitalization)
  Sender: FDA-Public Use
  Company Number: PHHY2011FR04841

PATIENT
  Sex: Female

DRUGS (13)
  1. TEGRETOL [Suspect]
     Dosage: 400 MG, BID
     Route: 048
     Dates: start: 20100929, end: 20101207
  2. DEPAMIDE [Suspect]
     Dosage: 900 MG, BID
     Dates: start: 20100924, end: 20101205
  3. NEULEPTIL [Suspect]
     Dosage: 10 DRP, TID
     Route: 048
     Dates: start: 20100916, end: 20101205
  4. RIVOTRIL [Suspect]
     Dosage: 5 DRP, TID
     Route: 048
     Dates: end: 20101208
  5. DEPAMIDE [Suspect]
     Indication: ABNORMAL BEHAVIOUR
     Dosage: 300 MG, BID
     Route: 048
     Dates: start: 20100914, end: 20100923
  6. RISPERDAL [Suspect]
     Dosage: 2 MG, BID
     Dates: end: 20101208
  7. URBANYL [Suspect]
     Indication: EPILEPSY
     Dosage: 60 MG/DAY
     Route: 048
     Dates: start: 20100830
  8. RISPERDAL [Suspect]
     Indication: ABNORMAL BEHAVIOUR
     Dosage: 2 MG, QD
     Route: 048
     Dates: start: 20100830, end: 20100907
  9. ACETAMINOPHEN [Suspect]
     Indication: PAIN
     Dosage: 3 MG, PER DAY
     Route: 048
     Dates: start: 20101202
  10. TEGRETOL [Suspect]
     Indication: EPILEPSY
     Dosage: 600 MG, BID
     Route: 048
     Dates: start: 20100830, end: 20100928
  11. RIVOTRIL [Suspect]
     Dosage: 10 DRP, TID
     Route: 048
     Dates: start: 20100830, end: 20101105
  12. DEPAMIDE [Suspect]
     Dosage: 300 MG, BID
  13. NEULEPTIL [Suspect]
     Dosage: 2 DRP, TID

REACTIONS (2)
  - DISTURBANCE IN ATTENTION [None]
  - ANTICONVULSANT DRUG LEVEL ABOVE THERAPEUTIC [None]
